FAERS Safety Report 12816615 (Version 1)
Quarter: 2016Q4

REPORT INFORMATION
  Report Type: Spontaneous
  Country: DE (occurrence: DE)
  Receive Date: 20161005
  Receipt Date: 20161005
  Transmission Date: 20170207
  Serious: Yes (Hospitalization, Other)
  Sender: FDA-Public Use
  Company Number: DE-PFIZER INC-2016457455

PATIENT
  Age: 32 Year
  Sex: Female
  Weight: 80 kg

DRUGS (9)
  1. SERTRALINE HCL [Suspect]
     Active Substance: SERTRALINE HYDROCHLORIDE
     Indication: ANXIETY
     Dosage: 100 MG, DAILY
     Route: 048
     Dates: start: 20150315, end: 20150727
  2. PROMETHAZINE [Concomitant]
     Active Substance: PROMETHAZINE\PROMETHAZINE HYDROCHLORIDE
     Indication: PANIC ATTACK
     Dosage: 25 MG/D, AS NEEDED, MAX 3 TIMES/WEEK
     Route: 048
     Dates: start: 201403
  3. AGYRAX [Concomitant]
     Active Substance: MECLIZINE HYDROCHLORIDE
     Indication: NAUSEA
     Dosage: STARTED AT THE BEGINNING OF MAY 2015
     Route: 048
     Dates: start: 20150501, end: 20150625
  4. FOLIO [Concomitant]
     Active Substance: FOLIC ACID
     Indication: PROPHYLAXIS OF NEURAL TUBE DEFECT
     Dosage: 0.4 MG, 1X/DAY (5. - 6. GESTATIONAL WEEK)
     Route: 048
  5. TAVOR (LORAZEPAM) [Concomitant]
     Active Substance: LORAZEPAM
     Indication: PANIC ATTACK
     Dosage: 0.5 MG/D, AS NEEDED, 1-2 TIMES/WEEK
     Route: 048
  6. VALDOXAN [Suspect]
     Active Substance: AGOMELATINE
     Indication: DEPRESSION
     Dosage: 25 MG, 1X/DAY
     Route: 048
     Dates: start: 2014
  7. IBUPROFEN. [Concomitant]
     Active Substance: IBUPROFEN
     Indication: PAIN
     Dosage: AS NEEDED, ONCE/WEEK
     Route: 048
     Dates: start: 20150315, end: 20150727
  8. CEFUROXIME. [Concomitant]
     Active Substance: CEFUROXIME
     Indication: PROPHYLAXIS URINARY TRACT INFECTION
     Dosage: 1.5 G, DAILY, DURING HOSPITAL STAY PRESCRIBED FOR 6 TO 8 WEEKS (18.3. - 19.1. GESTATIONAL WEEK)
     Route: 042
  9. SERTRALINE HCL [Suspect]
     Active Substance: SERTRALINE HYDROCHLORIDE
     Indication: DEPRESSION
     Dosage: 75 MG, DAILY
     Route: 048
     Dates: start: 2014

REACTIONS (4)
  - Pyelonephritis [Recovered/Resolved]
  - Induced labour [Recovered/Resolved]
  - Retroplacental haematoma [Recovered/Resolved]
  - Pyrexia [Recovered/Resolved]
